FAERS Safety Report 8378947-3 (Version None)
Quarter: 2012Q2

REPORT INFORMATION
  Report Type: 
  Country: None (occurrence: None)
  Receive Date: 20120523
  Receipt Date: 20120519
  Transmission Date: 20120825
  Serious: Yes (Other)
  Sender: FDA-Public Use
  Company Number: US-PFIZER INC-2012121525

PATIENT
  Sex: Female

DRUGS (1)
  1. TOVIAZ [Suspect]
     Dosage: UNK

REACTIONS (7)
  - CONSTIPATION [None]
  - ABDOMINAL DISCOMFORT [None]
  - HEADACHE [None]
  - NOCTURIA [None]
  - URINARY RETENTION [None]
  - DRY MOUTH [None]
  - SPEECH DISORDER [None]
